FAERS Safety Report 25029253 (Version 3)
Quarter: 2025Q1

REPORT INFORMATION
  Report Type: Spontaneous
  Country: AU (occurrence: AU)
  Receive Date: 20250303
  Receipt Date: 20250310
  Transmission Date: 20250409
  Serious: Yes (Death, Other)
  Sender: CSL BEHRING
  Company Number: AU-BEH-2025197358

PATIENT
  Age: 11 Year
  Sex: Male

DRUGS (1)
  1. ANTIHEMOPHILIC FACTOR HUMAN [Suspect]
     Active Substance: ANTIHEMOPHILIC FACTOR HUMAN
     Route: 065

REACTIONS (10)
  - HIV infection [Fatal]
  - Suspected transmission of an infectious agent via product [Unknown]
  - Lower respiratory tract infection [Unknown]
  - Respiratory disorder [Unknown]
  - Weight decreased [Unknown]
  - Lethargy [Unknown]
  - Malaise [Unknown]
  - Loss of personal independence in daily activities [Unknown]
  - Red blood cell sedimentation rate increased [Unknown]
  - Illness [Unknown]

NARRATIVE: CASE EVENT DATE: 19840101
